FAERS Safety Report 4869528-4 (Version None)
Quarter: 2005Q4

REPORT INFORMATION
  Report Type: 
  Country: None (occurrence: None)
  Receive Date: 20051223
  Receipt Date: 20051209
  Transmission Date: 20060501
  Serious: Yes (Hospitalization)
  Sender: FDA-Public Use
  Company Number: 2005P1000623

PATIENT
  Age: 62 Year
  Sex: Male
  Weight: 73 kg

DRUGS (10)
  1. RETEPLASE (RETEPLASE) [Suspect]
     Indication: ACUTE MYOCARDIAL INFARCTION
     Dosage: IV
     Route: 042
     Dates: start: 20050928, end: 20050928
  2. ABCIXIMAB (ABCIXIMAB) [Suspect]
     Indication: ACUTE MYOCARDIAL INFARCTION
     Dosage: IV
     Route: 042
     Dates: start: 20050928
  3. ASPIRIN [Concomitant]
  4. METOPROLOL [Concomitant]
  5. TRIMETAZIDINE [Concomitant]
  6. SIMVASTATIN [Concomitant]
  7. PERINDOPRIL [Concomitant]
  8. PROPAFENONE HCL [Concomitant]
  9. TICLOPIDINE HCL [Concomitant]
  10. MAGNESIUM [Concomitant]

REACTIONS (1)
  - CORONARY ARTERY STENOSIS [None]
